FAERS Safety Report 19394072 (Version 1)
Quarter: 2021Q2

REPORT INFORMATION
  Report Type: Spontaneous
  Country: CW (occurrence: CW)
  Receive Date: 20210609
  Receipt Date: 20210609
  Transmission Date: 20210717
  Serious: Yes (Hospitalization)
  Sender: FDA-Public Use
  Company Number: CW-STRIDES ARCOLAB LIMITED-2021SP006186

PATIENT
  Age: 49 Year
  Sex: Male

DRUGS (7)
  1. SODIUM BICARBONATE. [Concomitant]
     Active Substance: SODIUM BICARBONATE
     Indication: PRODUCT USED FOR UNKNOWN INDICATION
     Dosage: SODIUM BICARBONATE 150 MEQ/ (DEXTROSE) 1,150 MLS AT 150 MLS/HR
     Route: 042
  2. ROXICODONE [Concomitant]
     Active Substance: OXYCODONE HYDROCHLORIDE
     Indication: PAIN
     Dosage: 5 MILLIGRAM, EVERY 4 HRS
     Route: 048
  3. APRESOLINE HYDROCHLORIDE [Concomitant]
     Active Substance: HYDRALAZINE HYDROCHLORIDE
     Indication: HYPERTENSION
     Dosage: 10 MILLIGRAM, EVERY 4 HRS
     Route: 042
  4. IBUPROFEN. [Suspect]
     Active Substance: IBUPROFEN
     Indication: BACK PAIN
     Dosage: 1600 MILLIGRAM (8 TABLETS)
     Route: 065
  5. CEFTRIAXONE SODIUM. [Concomitant]
     Active Substance: CEFTRIAXONE SODIUM
     Indication: CYSTITIS
     Dosage: CEFTRIAXONE SODIUM 1 GM/ (SODIUM CHLORIDE) 100 MLS AT 200 MLS/HR IV Q24H AT 1900 SCH
     Route: 042
  6. ZOFRAN [Concomitant]
     Active Substance: ONDANSETRON HYDROCHLORIDE
     Indication: NAUSEA
     Dosage: 4 MILLIGRAM, EVERY 6 HRS
     Route: 042
  7. MORPHINE SULFATE. [Concomitant]
     Active Substance: MORPHINE SULFATE
     Indication: BACK PAIN
     Dosage: 2 MILLIGRAM, EVERY 2 HRS
     Route: 042

REACTIONS (1)
  - Tubulointerstitial nephritis [Unknown]
